FAERS Safety Report 21270529 (Version 6)
Quarter: 2023Q1

REPORT INFORMATION
  Report Type: Report from Study
  Country: US (occurrence: US)
  Receive Date: 20220830
  Receipt Date: 20230201
  Transmission Date: 20230418
  Serious: Yes (Disabling, Other)
  Sender: FDA-Public Use
  Company Number: US-HORIZON THERAPEUTICS-HZN-2022-006432

PATIENT

DRUGS (1)
  1. KRYSTEXXA [Suspect]
     Active Substance: PEGLOTICASE
     Indication: Product used for unknown indication
     Dosage: FIRST INFUSION
     Route: 042
     Dates: start: 20220513

REACTIONS (7)
  - Immobile [Recovering/Resolving]
  - Gout [Recovering/Resolving]
  - Nephrolithiasis [Recovered/Resolved]
  - Product supply issue [Unknown]
  - Sciatica [Unknown]
  - Bedridden [Unknown]
  - Influenza [Unknown]

NARRATIVE: CASE EVENT DATE: 20220101
